FAERS Safety Report 4890947-4 (Version None)
Quarter: 2006Q1

REPORT INFORMATION
  Report Type: 
  Country: None (occurrence: None)
  Receive Date: 20060125
  Receipt Date: 20051125
  Transmission Date: 20060701
  Serious: Yes (Other)
  Sender: FDA-Public Use
  Company Number: PHBS2005JP17496

PATIENT
  Age: 28 Year
  Sex: Female

DRUGS (8)
  1. RITALIN [Suspect]
     Indication: DEPRESSION
     Dosage: 40 MG/D
     Route: 048
  2. RITALIN [Suspect]
     Dosage: 40 MG/DAY
     Route: 048
     Dates: start: 20050124, end: 20051128
  3. RITALIN [Suspect]
     Dosage: 30 MG/DAY
     Route: 048
     Dates: start: 20051129
  4. AMOBAN [Concomitant]
     Indication: INSOMNIA
     Dosage: 10 MG/D
     Route: 048
     Dates: start: 20050124
  5. ALCOHOL [Concomitant]
  6. ROHYPNOL [Concomitant]
     Indication: INSOMNIA
     Dosage: 2 MG/DAY
     Route: 048
     Dates: start: 20050124
  7. PROMETHAZINE HCL [Concomitant]
     Indication: INSOMNIA
     Dosage: 15 MG/DAY
     Route: 048
     Dates: start: 20050124
  8. LOXONIN [Concomitant]
     Indication: HEADACHE
     Dosage: 60 MG/DAY
     Route: 048
     Dates: start: 20050124

REACTIONS (6)
  - DYSARTHRIA [None]
  - EXTRAPYRAMIDAL DISORDER [None]
  - GAIT DISTURBANCE [None]
  - MOVEMENT DISORDER [None]
  - PARKINSON'S DISEASE [None]
  - TREMOR [None]
